FAERS Safety Report 12530663 (Version 1)
Quarter: 2016Q3

REPORT INFORMATION
  Report Type: Report from Study
  Country: KR (occurrence: KR)
  Receive Date: 20160706
  Receipt Date: 20160706
  Transmission Date: 20161109
  Serious: Yes (Hospitalization)
  Sender: FDA-Public Use
  Company Number: KR-EISAI MEDICAL RESEARCH-EC-2016-018211

PATIENT
  Age: 55 Year
  Sex: Female
  Weight: 47.3 kg

DRUGS (12)
  1. LEGALON [Concomitant]
     Active Substance: MILK THISTLE
  2. HALAVEN [Suspect]
     Active Substance: ERIBULIN MESYLATE
     Route: 041
     Dates: start: 20150811, end: 20151027
  3. SOLETON [Concomitant]
     Active Substance: ZALTOPROFEN
  4. HALAVEN [Suspect]
     Active Substance: ERIBULIN MESYLATE
     Indication: BREAST CANCER METASTATIC
     Route: 041
     Dates: start: 20150529, end: 20150628
  5. TYLENOL [Concomitant]
     Active Substance: ACETAMINOPHEN
  6. ALBIS [Concomitant]
     Active Substance: BISMUTH SUBCITRATE\RANITIDINE HYDROCHLORIDE\SUCRALFATE
  7. HEXAMEDINE SOLUTION [Concomitant]
  8. JOINS TAB [Concomitant]
  9. URSODEOXYCHOLIC ACID [Concomitant]
     Active Substance: URSODIOL
  10. SYMBALTA [Concomitant]
  11. LEUCOSTIM [Concomitant]
     Active Substance: FILGRASTIM
  12. ADCAL [Concomitant]
     Active Substance: CALCIUM CARBONATE

REACTIONS (1)
  - Hepatic function abnormal [Not Recovered/Not Resolved]

NARRATIVE: CASE EVENT DATE: 20150911
